FAERS Safety Report 9233949 (Version 2)
Quarter: 2013Q2

REPORT INFORMATION
  Report Type: Spontaneous
  Country: US (occurrence: US)
  Receive Date: 20130416
  Receipt Date: 20130416
  Transmission Date: 20140414
  Serious: No
  Sender: FDA-Public Use
  Company Number: US-BANPHARM-20120391

PATIENT
  Age: 49 Year
  Sex: 0

DRUGS (2)
  1. ALEVE LIQUID GELS 220MG [Suspect]
     Indication: PAIN
     Dosage: 1 DF, BID
     Route: 048
     Dates: start: 201210, end: 201210
  2. ALEVE TABLETS ANY TYPE [Suspect]
     Dosage: 1 TABLET, BID
     Route: 048
     Dates: start: 201006

REACTIONS (1)
  - Drug effect delayed [Unknown]
